FAERS Safety Report 5733384-2 (Version None)
Quarter: 2008Q2

REPORT INFORMATION
  Report Type: 
  Country: None (occurrence: None)
  Receive Date: 20080509
  Receipt Date: 20080430
  Transmission Date: 20081010
  Serious: Yes (Hospitalization)
  Sender: FDA-Public Use
  Company Number: US-ABBOTT-08P-163-0450037-00

PATIENT
  Sex: Female
  Weight: 88.984 kg

DRUGS (14)
  1. HUMIRA [Suspect]
     Indication: RHEUMATOID ARTHRITIS
     Route: 058
     Dates: start: 20070920, end: 20071201
  2. HUMIRA [Suspect]
     Route: 058
     Dates: start: 20080104, end: 20080401
  3. PREDNISONE TAB [Concomitant]
     Indication: RHEUMATOID ARTHRITIS
     Route: 048
     Dates: start: 20080120, end: 20080201
  4. PREDNISONE TAB [Concomitant]
     Route: 048
     Dates: start: 20080201, end: 20080425
  5. PREDNISONE TAB [Concomitant]
     Route: 048
     Dates: start: 20080425
  6. METHOTREXATE [Concomitant]
     Indication: RHEUMATOID ARTHRITIS
     Dosage: 4 - 2.5 MG TABLETS WEEKLY
     Route: 048
     Dates: start: 20070417, end: 20070801
  7. METHOTREXATE [Concomitant]
     Dosage: 6 - 2.5 MG TABS WEEKLY
     Route: 048
     Dates: start: 20070801, end: 20070901
  8. METHOTREXATE [Concomitant]
     Dosage: 8 - 2.5 MG TABS WEEKLY
     Route: 048
     Dates: start: 20070901, end: 20080425
  9. METHOTREXATE [Concomitant]
     Dosage: 0.8 CC WEEKLY INJECTION
     Route: 050
     Dates: start: 20080425
  10. HYDROXYCHLOROQUINE SULFATE [Concomitant]
     Indication: RHEUMATOID ARTHRITIS
     Route: 048
     Dates: start: 20070223
  11. FOLIC ACID [Concomitant]
     Indication: VITAMIN SUPPLEMENTATION
     Route: 048
     Dates: start: 20070417
  12. ESCITALOPRAM OXALATE [Concomitant]
     Indication: DEPRESSION
     Route: 048
  13. NAPROXEN [Concomitant]
     Indication: RHEUMATOID ARTHRITIS
     Dosage: 500 MG DAILY AS NEEDED
     Route: 048
  14. RISEDRONATE SODIUM [Concomitant]
     Indication: RHEUMATOID ARTHRITIS
     Dosage: 35 MG WEEKLY
     Route: 048
     Dates: start: 20080420

REACTIONS (5)
  - ARTHRITIS [None]
  - BLOOD POTASSIUM DECREASED [None]
  - MYALGIA [None]
  - MYASTHENIA GRAVIS [None]
  - PLEURISY [None]
